FAERS Safety Report 11672781 (Version 1)
Quarter: 2015Q4

REPORT INFORMATION
  Report Type: Spontaneous
  Country: US (occurrence: US)
  Receive Date: 20151027
  Receipt Date: 20151027
  Transmission Date: 20160304
  Serious: No
  Sender: FDA-Public Use
  Company Number: US-ELI_LILLY_AND_COMPANY-US201006005300

PATIENT
  Age: 63 Year
  Sex: Female

DRUGS (1)
  1. FORTEO [Suspect]
     Active Substance: TERIPARATIDE
     Indication: OSTEOPOROSIS
     Dosage: 20 UG, DAILY (1/D)
     Dates: start: 20100617, end: 20100630

REACTIONS (17)
  - Injection site pain [Recovering/Resolving]
  - Malaise [Recovering/Resolving]
  - Back pain [Recovering/Resolving]
  - Arthropathy [Recovering/Resolving]
  - Chest pain [Recovered/Resolved]
  - Flank pain [Recovering/Resolving]
  - Injection site bruising [Not Recovered/Not Resolved]
  - Dizziness [Unknown]
  - Renal pain [Recovering/Resolving]
  - Influenza like illness [Recovering/Resolving]
  - Gait disturbance [Recovering/Resolving]
  - Back pain [Recovered/Resolved]
  - Abdominal discomfort [Unknown]
  - Chest pain [Recovering/Resolving]
  - Bone pain [Recovering/Resolving]
  - Oropharyngeal pain [Recovering/Resolving]
  - Headache [Recovering/Resolving]

NARRATIVE: CASE EVENT DATE: 20100617
